FAERS Safety Report 6892272-9 (Version None)
Quarter: 2010Q3

REPORT INFORMATION
  Report Type: 
  Country: None (occurrence: None)
  Receive Date: 20100731
  Receipt Date: 20080328
  Transmission Date: 20110219
  Serious: No
  Sender: FDA-Public Use
  Company Number: US-PFIZER INC-2007074413

PATIENT
  Sex: Female
  Weight: 62.6 kg

DRUGS (10)
  1. NEURONTIN [Suspect]
     Indication: POST HERPETIC NEURALGIA
     Dates: start: 20040101, end: 20050101
  2. LYRICA [Suspect]
     Indication: POST HERPETIC NEURALGIA
     Route: 048
     Dates: start: 20050101
  3. LYRICA [Suspect]
     Indication: NERVE INJURY
  4. ACETAMINOPHEN [Concomitant]
  5. WARFARIN SODIUM [Concomitant]
  6. ALDACTONE [Concomitant]
  7. LASIX [Concomitant]
  8. DIGITEK [Concomitant]
  9. CHOLESTEROL- AND TRIGLYCERIDE REDUCERS [Concomitant]
  10. PREVACID [Concomitant]

REACTIONS (7)
  - DRUG INEFFECTIVE [None]
  - FATIGUE [None]
  - MUSCULOSKELETAL PAIN [None]
  - NECK PAIN [None]
  - PAIN [None]
  - SEDATION [None]
  - SOMNOLENCE [None]
